FAERS Safety Report 11032286 (Version 1)
Quarter: 2015Q2

REPORT INFORMATION
  Report Type: Spontaneous
  Country: US (occurrence: None)
  Receive Date: 20150414
  Receipt Date: 20150414
  Transmission Date: 20150821
  Serious: Yes (Hospitalization)
  Sender: FDA-Public Use
  Company Number: ABR_02153_2015

PATIENT
  Age: 70 Year
  Sex: Female

DRUGS (5)
  1. EDARBYCLOR [Suspect]
     Active Substance: AZILSARTAN KAMEDOXOMIL\CHLORTHALIDONE
     Indication: BLOOD PRESSURE
     Dosage: 1 DF, 40/12.5 MG
     Route: 048
     Dates: start: 20150102
  2. BYSTOLIC [Concomitant]
     Active Substance: NEBIVOLOL HYDROCHLORIDE
  3. SIMVASTATIN. [Concomitant]
     Active Substance: SIMVASTATIN
  4. ERYTHROMYCIN 250 MG [Suspect]
     Active Substance: ERYTHROMYCIN
     Indication: SINUSITIS
     Route: 048
     Dates: start: 20150115, end: 20150115
  5. PROTONIX [Concomitant]
     Active Substance: PANTOPRAZOLE SODIUM

REACTIONS (4)
  - Blood sodium decreased [None]
  - Diarrhoea [None]
  - Malaise [None]
  - Blood pressure diastolic decreased [None]

NARRATIVE: CASE EVENT DATE: 20150115
